FAERS Safety Report 9417108 (Version 1)
Quarter: 2013Q3

REPORT INFORMATION
  Report Type: Spontaneous
  Country: GB (occurrence: None)
  Receive Date: 20130722
  Receipt Date: 20130722
  Transmission Date: 20140515
  Serious: Yes (Other)
  Sender: FDA-Public Use
  Company Number: HRA-MET20130040

PATIENT
  Age: 74 Year
  Sex: Male

DRUGS (3)
  1. METYRAPONE [Suspect]
     Indication: CUSHING^S SYNDROME
     Dosage: 1500 MG (500 MG, 3 IN 1 D)
  2. INSULIN [Suspect]
     Indication: TYPE 2 DIABETES MELLITUS
  3. MITOTANE [Concomitant]

REACTIONS (1)
  - Hypoglycaemia [None]
